FAERS Safety Report 4590573-0 (Version None)
Quarter: 2005Q1

REPORT INFORMATION
  Report Type: 
  Country: None (occurrence: None)
  Receive Date: 20050224
  Receipt Date: 20050128
  Transmission Date: 20050727
  Serious: Yes (Other)
  Sender: FDA-Public Use
  Company Number: AU-GLAXOSMITHKLINE-B0370143A

PATIENT
  Age: 47 Year
  Sex: Female

DRUGS (1)
  1. IMIGRAN [Suspect]
     Indication: MIGRAINE
     Dosage: 6MG SINGLE DOSE
     Route: 058
     Dates: start: 19930519

REACTIONS (8)
  - AGITATION [None]
  - CONFUSIONAL STATE [None]
  - CYANOSIS [None]
  - DYSPNOEA [None]
  - HYPERKINESIA [None]
  - PARAESTHESIA [None]
  - RASH [None]
  - VOMITING [None]
